FAERS Safety Report 8536675-5 (Version None)
Quarter: 2012Q3

REPORT INFORMATION
  Report Type: 
  Country: None (occurrence: None)
  Receive Date: 20120725
  Receipt Date: 20120718
  Transmission Date: 20120928
  Serious: Yes (Disabling)
  Sender: FDA-Public Use
  Company Number: US-BAYER-2012-044102

PATIENT
  Age: 61 Year
  Sex: Female

DRUGS (1)
  1. CLIMARA [Suspect]
     Dosage: 0.05 MG, CONT
     Route: 062
     Dates: start: 20120331, end: 20120425

REACTIONS (3)
  - HEARING DISABILITY [None]
  - HEADACHE [None]
  - PAINFUL RESPIRATION [None]
